FAERS Safety Report 6212872-9 (Version None)
Quarter: 2009Q2

REPORT INFORMATION
  Report Type: 
  Country: None (occurrence: None)
  Receive Date: 20090603
  Receipt Date: 20090525
  Transmission Date: 20091009
  Serious: Yes (Hospitalization)
  Sender: FDA-Public Use
  Company Number: CA-JNJFOC-20090506280

PATIENT
  Sex: Female
  Weight: 55.6 kg

DRUGS (1)
  1. REMICADE [Suspect]
     Indication: CROHN'S DISEASE
     Dosage: 14 INFUSIONS ON UNSPECIFIED DATES
     Route: 042

REACTIONS (2)
  - PULMONARY THROMBOSIS [None]
  - SYSTEMIC LUPUS ERYTHEMATOSUS [None]
